FAERS Safety Report 7829026-2 (Version None)
Quarter: 2011Q4

REPORT INFORMATION
  Report Type: 
  Country: None (occurrence: None)
  Receive Date: 20111020
  Receipt Date: 20111007
  Transmission Date: 20120403
  Serious: Yes (Other)
  Sender: FDA-Public Use
  Company Number: JP-MYLANLABS-2011S1021355

PATIENT
  Age: 56 Year
  Sex: Male
  Weight: 65 kg

DRUGS (2)
  1. CARBOPLATIN [Suspect]
     Indication: THYMIC CANCER METASTATIC
     Dosage: 6 AUC EVERY 3 WEEKS
     Route: 065
  2. PACLITAXEL [Suspect]
     Indication: THYMIC CANCER METASTATIC
     Dosage: 200 MG/M2 EVERY 3 WEEKS
     Route: 065

REACTIONS (5)
  - LEUKOPENIA [None]
  - ANAEMIA [None]
  - NEUTROPENIA [None]
  - FATIGUE [None]
  - CONSTIPATION [None]
